FAERS Safety Report 15046179 (Version 1)
Quarter: 2018Q2

REPORT INFORMATION
  Report Type: Spontaneous
  Country: US (occurrence: US)
  Receive Date: 20180601
  Receipt Date: 20180601
  Transmission Date: 20180711
  Serious: Yes (Hospitalization)
  Sender: FDA-Public Use
  Company Number: None

PATIENT
  Age: 44 Year
  Sex: Female

DRUGS (1)
  1. ENBREL [Suspect]
     Active Substance: ETANERCEPT
     Dates: start: 20170801, end: 20180301

REACTIONS (3)
  - Platelet count decreased [None]
  - Pneumonia [None]
  - Infection [None]

NARRATIVE: CASE EVENT DATE: 20180301
